FAERS Safety Report 5319990-8 (Version None)
Quarter: 2007Q1

REPORT INFORMATION
  Report Type: 
  Country: None (occurrence: None)
  Receive Date: 20070201
  Receipt Date: 20060510
  Transmission Date: 20070707
  Serious: Yes (Other)
  Sender: FDA-Public Use
  Company Number: 2006BH009763

PATIENT
  Sex: Female

DRUGS (4)
  1. DIANEAL PD4, ULTABAG CONTAINER [Suspect]
     Indication: DIALYSIS
     Dosage: IP
     Route: 033
  2. DIANEAL PD4, ULTABAG CONTAINER [Suspect]
  3. DIANEAL PD4, ULTABAG CONTAINER [Suspect]
  4. DIANEAL PD4, ULTABAG CONTAINER [Suspect]

REACTIONS (1)
  - PERITONITIS [None]
